FAERS Safety Report 13109628 (Version 1)
Quarter: 2017Q1

REPORT INFORMATION
  Report Type: Spontaneous
  Country: US (occurrence: US)
  Receive Date: 20170112
  Receipt Date: 20170112
  Transmission Date: 20170428
  Serious: No
  Sender: FDA-Public Use
  Company Number: US-TARO-2015TAR01139

PATIENT
  Sex: Female

DRUGS (1)
  1. CLOTRIMAZOLE VAGINAL CREAM USP 1% 7 DAY [Suspect]
     Active Substance: CLOTRIMAZOLE
     Indication: FUNGAL INFECTION
     Dosage: UNK
     Route: 067
     Dates: start: 20151208

REACTIONS (3)
  - Vaginal discharge [Unknown]
  - Inappropriate schedule of drug administration [Unknown]
  - Drug ineffective [Not Recovered/Not Resolved]

NARRATIVE: CASE EVENT DATE: 20151208
